FAERS Safety Report 7802920-4 (Version None)
Quarter: 2011Q4

REPORT INFORMATION
  Report Type: 
  Country: None (occurrence: None)
  Receive Date: 20111007
  Receipt Date: 20110928
  Transmission Date: 20120403
  Serious: Yes (Hospitalization)
  Sender: FDA-Public Use
  Company Number: KR-ELI_LILLY_AND_COMPANY-KR201109008375

PATIENT
  Age: 69 Year
  Sex: Female
  Weight: 50 kg

DRUGS (2)
  1. HUMALOG MIX 75/25 [Suspect]
     Dosage: 8 IU, EACH EVENING
     Dates: start: 20110802
  2. HUMALOG MIX 75/25 [Suspect]
     Indication: DIABETES MELLITUS
     Dosage: 10 IU, EACH MORNING
     Dates: start: 20110802

REACTIONS (4)
  - UTERINE HAEMORRHAGE [None]
  - UTERINE ABSCESS [None]
  - HAEMATURIA [None]
  - UTERINE INFLAMMATION [None]
